FAERS Safety Report 13915391 (Version 1)
Quarter: 2017Q3

REPORT INFORMATION
  Report Type: Spontaneous
  Country: US (occurrence: US)
  Receive Date: 20170828
  Receipt Date: 20170828
  Transmission Date: 20171127
  Serious: Yes (Other)
  Sender: FDA-Public Use
  Company Number: None

PATIENT
  Age: 74 Year
  Sex: Male
  Weight: 107.55 kg

DRUGS (13)
  1. LORAZEPAM. [Concomitant]
     Active Substance: LORAZEPAM
  2. FLOMAX [Concomitant]
     Active Substance: TAMSULOSIN HYDROCHLORIDE
  3. VENLAFAXINE [Concomitant]
     Active Substance: VENLAFAXINE HYDROCHLORIDE
  4. VITAMIN D [Concomitant]
     Active Substance: CHOLECALCIFEROL
  5. PROTONIX [Concomitant]
     Active Substance: PANTOPRAZOLE SODIUM
  6. SUCRALFATE. [Concomitant]
     Active Substance: SUCRALFATE
  7. ROSUVASTATIN. [Concomitant]
     Active Substance: ROSUVASTATIN
  8. QUETIAPINE. [Concomitant]
     Active Substance: QUETIAPINE
  9. MYRBETRIQ [Concomitant]
     Active Substance: MIRABEGRON
  10. APIXABAN [Concomitant]
     Active Substance: APIXABAN
  11. VALERIAN [Concomitant]
     Active Substance: VALERIAN
  12. MELATONIN [Concomitant]
     Active Substance: MELATONIN
  13. TRULANCE [Suspect]
     Active Substance: PLECANATIDE
     Indication: DIARRHOEA
     Dosage: ?          QUANTITY:1 TABLET(S);?
     Route: 048
     Dates: start: 20170725, end: 20170826

REACTIONS (1)
  - Diarrhoea [None]

NARRATIVE: CASE EVENT DATE: 20170824
